FAERS Safety Report 9905821 (Version 3)
Quarter: 2014Q1

REPORT INFORMATION
  Report Type: Spontaneous
  Country: IL (occurrence: IL)
  Receive Date: 20140218
  Receipt Date: 20140307
  Transmission Date: 20141002
  Serious: Yes (Hospitalization)
  Sender: FDA-Public Use
  Company Number: IL-B.I. PHARMACEUTICALS,INC./RIDGEFIELD-2014-BI-06498RI

PATIENT
  Age: 83 Year
  Sex: Female
  Weight: 89 kg

DRUGS (5)
  1. PRADAXA [Suspect]
     Indication: ATRIAL FIBRILLATION
     Dosage: 220 MG
     Route: 048
     Dates: start: 201312, end: 20140205
  2. CANDESARTAN [Concomitant]
     Indication: HYPERTENSION
     Dosage: 32 MG
     Route: 048
  3. DOXAZOSIN [Concomitant]
     Indication: HYPERTENSION
     Route: 048
  4. BISOPROLOL [Concomitant]
     Indication: HYPERTENSION
     Route: 048
  5. PROPAFENONE [Concomitant]
     Route: 048

REACTIONS (6)
  - Renal failure acute [Not Recovered/Not Resolved]
  - Haematuria [Recovered/Resolved]
  - International normalised ratio increased [Recovered/Resolved]
  - Renal impairment [Unknown]
  - Creatinine renal clearance decreased [Unknown]
  - Haemorrhage [Unknown]
